FAERS Safety Report 4628060-3 (Version None)
Quarter: 2005Q2

REPORT INFORMATION
  Report Type: 
  Country: None (occurrence: None)
  Receive Date: 20050401
  Receipt Date: 20050322
  Transmission Date: 20051028
  Serious: Yes (Congenital Anomaly)
  Sender: FDA-Public Use
  Company Number: 2005-DE-01166GD

PATIENT
  Sex: 0

DRUGS (5)
  1. CLARITHROMYCIN [Suspect]
     Dosage: IU
     Route: 015
  2. OMEPRAZOLE [Suspect]
     Dosage: IU
     Route: 015
  3. AMOXICILLIN [Suspect]
     Dosage: IU
     Route: 015
  4. BISMUTH (BISMUTH) [Suspect]
     Dosage: IU
     Route: 015
  5. ERYTHROMYCIN [Suspect]
     Dosage: IU
     Route: 015

REACTIONS (2)
  - DRUG EXPOSURE DURING PREGNANCY [None]
  - VENTRICULAR SEPTAL DEFECT [None]
